FAERS Safety Report 7228897-0 (Version None)
Quarter: 2011Q1

REPORT INFORMATION
  Report Type: 
  Country: None (occurrence: None)
  Receive Date: 20110117
  Receipt Date: 20110104
  Transmission Date: 20110831
  Serious: Yes (Life-Threatening, Hospitalization, Other)
  Sender: FDA-Public Use
  Company Number: US-ELI_LILLY_AND_COMPANY-US201012006390

PATIENT
  Sex: Female

DRUGS (15)
  1. VITAMIN D [Concomitant]
     Dosage: UNK, UNKNOWN
     Route: 065
  2. LEVOTHYROXINE [Concomitant]
     Dosage: UNK, UNKNOWN
     Route: 065
  3. FORTEO [Suspect]
     Dosage: 20 UG, DAILY (1/D)
     Route: 058
  4. PROMETHAZINE [Concomitant]
     Indication: NAUSEA
     Dosage: UNK, UNKNOWN
     Route: 065
  5. ACIDOPHILUS [Concomitant]
     Dosage: UNK, UNKNOWN
     Route: 065
  6. CALCIUM [Concomitant]
     Dosage: UNK, UNKNOWN
     Route: 065
  7. OXYCODONE [Concomitant]
     Dosage: UNK, 2/D
     Route: 065
  8. LABETALOL [Concomitant]
     Indication: BLOOD PRESSURE
     Dosage: UNK, UNKNOWN
     Route: 065
  9. ASPIRIN [Concomitant]
     Dosage: UNK, DAILY (1/D)
     Route: 065
  10. ALBUTEROL [Concomitant]
     Dosage: UNK, UNKNOWN
     Route: 065
  11. FORTEO [Suspect]
     Indication: OSTEOPOROSIS
     Dosage: 20 UG, DAILY (1/D)
     Route: 058
     Dates: start: 20100601
  12. PREMPRO [Concomitant]
     Dosage: UNK, UNKNOWN
     Route: 065
  13. CYMBALTA [Concomitant]
     Dosage: UNK, UNKNOWN
     Route: 065
  14. ADVAIR DISKUS 100/50 [Concomitant]
     Dosage: UNK, UNKNOWN
     Route: 065
  15. SPIRIVA [Concomitant]
     Dosage: UNK, UNKNOWN
     Route: 065

REACTIONS (3)
  - CHOKING [None]
  - DYSPNOEA [None]
  - CARDIAC FAILURE CONGESTIVE [None]
